FAERS Safety Report 9263290 (Version 1)
Quarter: 2013Q2

REPORT INFORMATION
  Report Type: Spontaneous
  Country: US (occurrence: US)
  Receive Date: 20130430
  Receipt Date: 20130430
  Transmission Date: 20140414
  Serious: Yes (Hospitalization, Disabling, Other)
  Sender: FDA-Public Use
  Company Number: US-009507513-1103USA00413

PATIENT
  Sex: Female
  Weight: 63.96 kg

DRUGS (11)
  1. FOSAMAX [Suspect]
     Indication: OSTEOPOROSIS
     Dosage: 70 MG, QW
     Route: 048
     Dates: start: 200010, end: 200805
  2. FOSAMAX [Suspect]
     Dosage: 10 MG, UNK
     Route: 048
     Dates: start: 200009, end: 200209
  3. MK-9278 [Concomitant]
     Dosage: UNK UNK, QD
     Dates: start: 2000
  4. FOSAMAX [Suspect]
     Indication: OSTEOPOROSIS
     Dosage: 70 MG, UNK
     Route: 048
     Dates: start: 20080526
  5. ALENDRONATE SODIUM [Suspect]
     Dosage: UNK
     Route: 048
     Dates: start: 200803, end: 200805
  6. GLIPIZIDE [Concomitant]
     Indication: DIABETES MELLITUS
     Dosage: 10 MG, QD
     Dates: start: 2000
  7. DIOVAN HCT [Concomitant]
     Indication: DIABETES MELLITUS
     Dosage: 32025 MG, QD
     Dates: start: 2000
  8. ATENOLOL [Concomitant]
     Indication: HYPERTENSION
     Dosage: 100 MG, UNK
  9. AMLODIPINE [Concomitant]
     Indication: HYPERTENSION
     Dosage: 5 MG, QD
  10. TEKTURNA [Concomitant]
     Indication: HYPERTENSION
     Dosage: 150 MG, QD
     Dates: start: 2000
  11. FEXOFENADINE HYDROCHLORIDE [Concomitant]
     Indication: HYPERSENSITIVITY

REACTIONS (30)
  - Femur fracture [Not Recovered/Not Resolved]
  - Fall [Unknown]
  - Atrial fibrillation [Unknown]
  - Malaise [Unknown]
  - Tooth disorder [Unknown]
  - Impaired healing [Unknown]
  - Thyroid disorder [Unknown]
  - Cataract [Unknown]
  - Fracture delayed union [Not Recovered/Not Resolved]
  - Device failure [Unknown]
  - Onychalgia [Unknown]
  - Ingrowing nail [Unknown]
  - Joint crepitation [Unknown]
  - Balance disorder [Unknown]
  - Anaemia [Unknown]
  - Hypercholesterolaemia [Unknown]
  - Arthritis [Unknown]
  - Spinal osteoarthritis [Unknown]
  - Muscle strain [Not Recovered/Not Resolved]
  - Device failure [Unknown]
  - Pelvic mass [Unknown]
  - Osteopenia [Unknown]
  - Cough [Recovering/Resolving]
  - Arthralgia [Unknown]
  - Musculoskeletal pain [Unknown]
  - Arthralgia [Unknown]
  - Gastritis [Unknown]
  - Pain in extremity [Unknown]
  - Pain in extremity [Unknown]
  - Gastrooesophageal reflux disease [Unknown]
